FAERS Safety Report 14019895 (Version 1)
Quarter: 2020Q3

REPORT INFORMATION
  Report Type: Report from Study
  Country: US (occurrence: US)
  Receive Date: 20170928
  Receipt Date: 20170928
  Transmission Date: 20201104
  Serious: Yes (Hospitalization)
  Sender: FDA-Public Use
  Company Number: US-JNJFOC-20170912352

PATIENT
  Age: 70 Year
  Sex: Male
  Weight: 109 kg

DRUGS (52)
  1. IBRUTINIB [Suspect]
     Active Substance: IBRUTINIB
     Indication: PLASMA CELL MYELOMA
     Route: 048
     Dates: start: 20170821, end: 20170821
  2. CARFILZOMIB [Suspect]
     Active Substance: CARFILZOMIB
     Indication: PLASMA CELL MYELOMA
     Dosage: 36 MG/M2, ON DAY 1,2,8,9,15,16 OF 28 DAY CYCLE
     Route: 042
     Dates: start: 20170710, end: 20170911
  3. DEXAMETHASONE. [Suspect]
     Active Substance: DEXAMETHASONE
     Indication: PLASMA CELL MYELOMA
     Dosage: 40 MG, ON DAY 1,8,15,16,22,23 OF 28 DAY CYCLE
     Route: 048
     Dates: start: 20170710, end: 20170716
  4. DEXAMETHASONE. [Suspect]
     Active Substance: DEXAMETHASONE
     Indication: PLASMA CELL MYELOMA
     Dosage: 10 MG, ON DAY 1,8,15,16,22,23 OF 28 DAY CYCLE
     Route: 048
     Dates: start: 20170717
  5. GRANISETRON [Concomitant]
     Active Substance: GRANISETRON
     Dosage: 1 MG, EVERY 12 HOURS, PRN
     Route: 048
  6. ACETAMINOPHEN. [Concomitant]
     Active Substance: ACETAMINOPHEN
     Dosage: 650 MG, EVERY 4 HOURS, PRN
     Route: 048
  7. DOCUSATE SODIUM. [Concomitant]
     Active Substance: DOCUSATE SODIUM
     Dosage: 100 MG, BID,PRN
     Route: 048
  8. MAGNESIUM [Concomitant]
     Active Substance: MAGNESIUM
     Route: 065
  9. ONDANSETRON [Concomitant]
     Active Substance: ONDANSETRON
     Dosage: 8 MG, Q8HOURS, PRN
     Route: 042
  10. PROCHLORPERAZINE EDISYLATE. [Concomitant]
     Active Substance: PROCHLORPERAZINE EDISYLATE
     Dosage: 5 MG, Q8HOURS, PRN
     Route: 042
  11. SALIVA SUBSTITUTE [Concomitant]
     Active Substance: CARBOXYMETHYLCELLULOSE SODIUM\DEVICE\SORBINICATE
     Dosage: 1 APPLICATION, PRN
     Route: 048
  12. SODIUM CHLORIDE. [Concomitant]
     Active Substance: SODIUM CHLORIDE
     Dosage: 3000 ML, SINGLE,PRN
     Route: 042
  13. AMILORIDE [Concomitant]
     Active Substance: AMILORIDE
     Route: 048
  14. SERTRALINE [Concomitant]
     Active Substance: SERTRALINE HYDROCHLORIDE
     Route: 048
  15. BENZOCAINE. [Concomitant]
     Active Substance: BENZOCAINE
     Dosage: 1 EACH Q2HOURS, MM,PRN
     Route: 050
  16. CARBOXYMETHYLCELLULOSE SODIUM. [Concomitant]
     Active Substance: CARBOXYMETHYLCELLULOSE SODIUM
     Dosage: 1?2 GTT, BID, PRN
     Route: 047
  17. HEPARIN SODIUM PORCINE [Concomitant]
     Active Substance: HEPARIN SODIUM
     Dosage: 30 UNIT, DAILY, PRN
     Route: 042
  18. SODIUM CHLORIDE. [Concomitant]
     Active Substance: SODIUM CHLORIDE
     Dosage: 20 ML, PRN
     Route: 042
  19. ZINC OXIDE. [Concomitant]
     Active Substance: ZINC OXIDE
     Dosage: 1 APPLICATION, PRN
     Route: 061
  20. ALLOPURINOL. [Concomitant]
     Active Substance: ALLOPURINOL
     Route: 048
  21. VALACYCLOVIR [Concomitant]
     Active Substance: VALACYCLOVIR HYDROCHLORIDE
     Route: 048
  22. ALTEPLASE RECOMBINANT [Concomitant]
     Dosage: 2 MG, PRN
     Route: 042
  23. BENZONATATE. [Concomitant]
     Active Substance: BENZONATATE
     Dosage: 100?200 MG, TID, PRN
     Route: 048
  24. SODIUM CHLORIDE. [Concomitant]
     Active Substance: SODIUM CHLORIDE
     Dosage: 250 ML, AS DIRECTED, PRN
     Route: 042
  25. ZOLPIDEM TARTRATE. [Concomitant]
     Active Substance: ZOLPIDEM TARTRATE
     Dosage: 5 MG, Q PM, PRN
     Route: 048
  26. GRANISETRON [Concomitant]
     Active Substance: GRANISETRON
     Dosage: 1 MG, EVERY 12 HOURS, PRN
     Route: 042
  27. PSYLLIUM HYDROPHILIC MUCILLOID [Concomitant]
     Active Substance: PSYLLIUM HUSK
     Dosage: 1 EACH, BID,,PRN
     Route: 048
  28. FENTANYL. [Concomitant]
     Active Substance: FENTANYL
     Dosage: 50 MCG PER HOUR, EVERY 72 HOURS
     Route: 062
  29. MYLANTA [Concomitant]
     Active Substance: ALUMINUM HYDROXIDE\DIMETHICONE\MAGNESIUM HYDROXIDE
     Dosage: 30 ML, Q 6 HOURS, PRN
     Route: 048
  30. FENTANYL CITRATE. [Concomitant]
     Active Substance: FENTANYL CITRATE
     Dosage: 12.5 MCG, Q4 HOURS, PRN
     Route: 042
  31. HAMAMELIS VIRGINIANA [Concomitant]
     Dosage: 1 EACH, Q 1 HOUR, PRN
     Route: 061
  32. HEPARIN SODIUM. [Concomitant]
     Active Substance: HEPARIN SODIUM
     Dosage: 500 UNIT, PRN
     Route: 042
  33. LORAZEPAM. [Concomitant]
     Active Substance: LORAZEPAM
     Dosage: 0.5 MG, Q4HOURS PRN
     Route: 048
  34. ONDANSETRON [Concomitant]
     Active Substance: ONDANSETRON
     Dosage: 8 MG, Q8HOURS, PRN
     Route: 048
  35. SCOPOLAMINE HYDROBROMIDE. [Concomitant]
     Active Substance: SCOPOLAMINE HYDROBROMIDE
     Dosage: 1 EACH, Q72HOURS, PRN
     Route: 062
  36. NYSTATIN. [Concomitant]
     Active Substance: NYSTATIN
     Dosage: 1 APPLICATION, PRN
     Route: 061
  37. CALCIUM [Concomitant]
     Active Substance: CALCIUM
     Dosage: AS DIRECTED
     Route: 065
  38. LORAZEPAM. [Concomitant]
     Active Substance: LORAZEPAM
     Dosage: 0.5 MG, Q4HOURS PRN
     Route: 042
  39. OXYCODONE [Concomitant]
     Active Substance: OXYCODONE
     Dosage: 5 MG, Q4HOURS, PRN
     Route: 048
  40. LIDOCAINE. [Concomitant]
     Active Substance: LIDOCAINE
     Dosage: 1 APPLICATION, PRN
     Route: 061
  41. PETROLATUM. [Concomitant]
     Active Substance: PETROLATUM
     Dosage: 1 APPLICATION, PRN
     Route: 061
  42. LOPERAMIDE [Concomitant]
     Active Substance: LOPERAMIDE
     Dosage: 2 MG, Q4HOURS, PRN
     Route: 048
  43. PHOSPHORUS [Concomitant]
     Active Substance: PHOSPHORUS
     Dosage: AS DIRECTED
     Route: 065
  44. SODIUM CHLORIDE. [Concomitant]
     Active Substance: SODIUM CHLORIDE
     Dosage: 10 ML, QD, PRN
     Route: 042
  45. IBRUTINIB [Suspect]
     Active Substance: IBRUTINIB
     Indication: PLASMA CELL MYELOMA
     Route: 048
     Dates: start: 20170710, end: 20170820
  46. IBRUTINIB [Suspect]
     Active Substance: IBRUTINIB
     Indication: PLASMA CELL MYELOMA
     Route: 048
     Dates: start: 20170828
  47. FENTANYL. [Concomitant]
     Active Substance: FENTANYL
     Dosage: 100 MCG, PER HOUR, EVERY 72 HOURS
     Route: 062
  48. CEFEPIME [Concomitant]
     Active Substance: CEFEPIME HYDROCHLORIDE
     Dosage: 2G, EVERY 8 HOURS
     Route: 042
  49. FLUTICASONE PROPIONATE. [Concomitant]
     Active Substance: FLUTICASONE PROPIONATE
     Dosage: 2 SPRAYS DAILY,PRN
     Route: 045
  50. LIDOCAINE. [Concomitant]
     Active Substance: LIDOCAINE
     Dosage: 15 ML, Q1HOUR, SWISH AND SPIT, PRN
     Route: 048
  51. PROCHLORPERAZINE MALEATE. [Concomitant]
     Active Substance: PROCHLORPERAZINE MALEATE
     Dosage: 5 MG, Q8HOURS, PRN
     Route: 048
  52. SENNA LAXATIVE AND DOCUSATE SODIUM [Concomitant]
     Dosage: 1 EACH,Q12HOURS, PRN
     Route: 048

REACTIONS (1)
  - Pleural effusion [Recovered/Resolved]

NARRATIVE: CASE EVENT DATE: 20170908
